FAERS Safety Report 7299245-5 (Version None)
Quarter: 2011Q1

REPORT INFORMATION
  Report Type: 
  Country: None (occurrence: None)
  Receive Date: 20110217
  Receipt Date: 20110214
  Transmission Date: 20110831
  Serious: Yes (Hospitalization)
  Sender: FDA-Public Use
  Company Number: JP-MERCK-1102USA01582

PATIENT
  Age: 82 Year
  Sex: Male

DRUGS (9)
  1. ELECTROLYTES (UNSPECIFIED) [Concomitant]
     Route: 065
  2. PEPCID [Suspect]
     Indication: GASTRIC ULCER
     Route: 042
     Dates: start: 20071113
  3. ZYVOX [Suspect]
     Indication: PNEUMONIA
     Route: 042
     Dates: start: 20071113, end: 20071116
  4. AMINO ACIDS (UNSPECIFIED) AND CARBOHYDRATES (UNSPECIFIED) AND ELECTROL [Concomitant]
     Route: 065
  5. ELEMENMIC [Concomitant]
     Route: 065
  6. INTRALIPID 10% [Concomitant]
     Route: 065
  7. FESIN [Concomitant]
     Route: 065
  8. MEROPENEM [Concomitant]
     Route: 065
     Dates: end: 20071119
  9. SODIUM CHLORIDE [Concomitant]
     Route: 065

REACTIONS (2)
  - ANAEMIA [None]
  - PLATELET COUNT DECREASED [None]
